FAERS Safety Report 20320330 (Version 3)
Quarter: 2022Q2

REPORT INFORMATION
  Report Type: Report from Study
  Country: NZ (occurrence: NZ)
  Receive Date: 20220111
  Receipt Date: 20220420
  Transmission Date: 20220721
  Serious: Yes (Other)
  Sender: FDA-Public Use
  Company Number: NZ-ABBVIE-22K-118-4225800-00

PATIENT
  Sex: Female

DRUGS (2)
  1. HUMIRA [Suspect]
     Active Substance: ADALIMUMAB
     Indication: Psoriasis
     Route: 058
     Dates: start: 20211103
  2. PREDNISONE [Concomitant]
     Active Substance: PREDNISONE
     Indication: Product used for unknown indication

REACTIONS (16)
  - Drug-induced liver injury [Unknown]
  - Papulopustular rosacea [Unknown]
  - Fatigue [Unknown]
  - Tendon pain [Unknown]
  - Ligament pain [Unknown]
  - Acne [Not Recovered/Not Resolved]
  - Arthritis [Unknown]
  - Psoriasis [Recovered/Resolved]
  - Pain of skin [Unknown]
  - Pustular psoriasis [Not Recovered/Not Resolved]
  - Psoriasis [Unknown]
  - Discomfort [Unknown]
  - Drug ineffective [Unknown]
  - Psoriasis [Unknown]
  - Arthritis [Unknown]
  - Inflammation [Unknown]

NARRATIVE: CASE EVENT DATE: 20210101
